FAERS Safety Report 7136392-2 (Version None)
Quarter: 2010Q4

REPORT INFORMATION
  Report Type: 
  Country: None (occurrence: None)
  Receive Date: 20101206
  Receipt Date: 20101129
  Transmission Date: 20110411
  Serious: No
  Sender: FDA-Public Use
  Company Number: US-BIOGENIDEC-2010BI042076

PATIENT
  Age: 53 Year
  Sex: Female

DRUGS (3)
  1. TYSABRI [Suspect]
     Indication: MULTIPLE SCLEROSIS
     Route: 042
     Dates: start: 20070905
  2. TYSABRI [Suspect]
     Route: 042
     Dates: start: 20061005, end: 20070330
  3. PILL FOR MS (NOS) [Concomitant]
     Indication: MULTIPLE SCLEROSIS

REACTIONS (1)
  - LOSS OF CONTROL OF LEGS [None]
